FAERS Safety Report 5072641-2 (Version None)
Quarter: 2006Q3

REPORT INFORMATION
  Report Type: 
  Country: None (occurrence: None)
  Receive Date: 20060807
  Receipt Date: 20060718
  Transmission Date: 20061208
  Serious: Yes (Hospitalization)
  Sender: FDA-Public Use
  Company Number: JP-JPN-A200602680

PATIENT
  Age: 7 Year
  Sex: Male
  Weight: 31 kg

DRUGS (4)
  1. CLAVAMOX [Suspect]
     Indication: OTITIS MEDIA
     Route: 048
     Dates: start: 20060527
  2. TEGRETOL [Concomitant]
     Indication: EPILEPSY
     Route: 048
     Dates: start: 20031014
  3. MUCODYNE [Concomitant]
     Indication: OTITIS MEDIA
     Route: 048
     Dates: start: 20060527
  4. BIOFERMIN R [Concomitant]
     Route: 048
     Dates: start: 20060527

REACTIONS (6)
  - ERYTHEMA MULTIFORME [None]
  - GINGIVAL SWELLING [None]
  - PIGMENTATION DISORDER [None]
  - RASH [None]
  - SWELLING FACE [None]
  - URTICARIA [None]
